FAERS Safety Report 7917368-1 (Version None)
Quarter: 2011Q4

REPORT INFORMATION
  Report Type: 
  Country: None (occurrence: None)
  Receive Date: 20111116
  Receipt Date: 20111110
  Transmission Date: 20120403
  Serious: Yes (Hospitalization)
  Sender: FDA-Public Use
  Company Number: PHHO2011DE17446

PATIENT
  Sex: Male
  Weight: 60 kg

DRUGS (9)
  1. SOMATULINE DEPOT [Concomitant]
  2. AFINITOR [Suspect]
     Indication: NEUROENDOCRINE TUMOUR
     Dosage: 10 MG, UNK
     Route: 048
     Dates: start: 20110810, end: 20110914
  3. FLUTICASONE PROPIONATE/SALMETEROL [Concomitant]
     Dosage: 50/500
  4. IBANDRONATE SODIUM [Concomitant]
  5. NEBIVOLOL HCL [Concomitant]
     Dosage: 5 MG, UNK
  6. DICLOFENAC SODIUM [Concomitant]
     Dosage: 50 MG, UNK
  7. BERODUAL [Concomitant]
  8. ERGOCALCIFEROL [Concomitant]
  9. PANTOPRAZOLE SODIUM [Concomitant]
     Dosage: 20 MG, UNK

REACTIONS (2)
  - CHRONIC OBSTRUCTIVE PULMONARY DISEASE [None]
  - RESPIRATORY FAILURE [None]
